FAERS Safety Report 8051904-2 (Version None)
Quarter: 2012Q1

REPORT INFORMATION
  Report Type: 
  Country: None (occurrence: None)
  Receive Date: 20120111
  Receipt Date: 20120104
  Transmission Date: 20120608
  Serious: Yes (Death)
  Sender: FDA-Public Use
  Company Number: DKLU1075632

PATIENT
  Age: 32 Year
  Sex: Male

DRUGS (10)
  1. EPANUTIN (PHENYTOIN) [Concomitant]
  2. ZANAFLEX [Concomitant]
  3. ONFI (CLOBAZAM) (CLOBAZAM) (20 MG) [Suspect]
     Indication: CONVULSION
     Dosage: 20 MG, MILLIGRAM (S), 2 IN 1 D
  4. MORPHINE SULFATE [Suspect]
     Indication: PAIN
     Dosage: 80 MG, MILLIGRAM(S)
  5. TEMAZEPAM [Concomitant]
  6. MORPHINE SULFATE [Suspect]
     Indication: PAIN
     Dosage: ORAL
     Route: 048
     Dates: start: 20060117
  7. PROZAC [Concomitant]
  8. TRILEPTAL [Concomitant]
  9. BENZODIAZEPINE DERIVATIVES (BENZODIAZEPINE DERIVATIVES) [Concomitant]
  10. TRANSTEC (BUPRENORPHINE) [Concomitant]

REACTIONS (7)
  - ALCOHOL USE [None]
  - RESPIRATORY ARREST [None]
  - EPILEPSY [None]
  - MULTIPLE DRUG OVERDOSE ACCIDENTAL [None]
  - ANTIDEPRESSANT DRUG LEVEL ABOVE THERAPEUTIC [None]
  - FATIGUE [None]
  - TOXICITY TO VARIOUS AGENTS [None]
